FAERS Safety Report 8987012 (Version 1)
Quarter: 2012Q4

REPORT INFORMATION
  Report Type: 
  Country: US (occurrence: US)
  Receive Date: 20121227
  Receipt Date: 20121227
  Transmission Date: 20130627
  Serious: Yes (Other)
  Sender: FDA-Public Use
  Company Number: PHEH2012US025306

PATIENT
  Sex: Male

DRUGS (2)
  1. ZOMETA [Suspect]
     Dosage: monthly
  2. GAMMAGARD [Concomitant]

REACTIONS (4)
  - Plasma cell myeloma [Unknown]
  - Hyperthyroidism [Unknown]
  - Immunosuppression [Unknown]
  - Blood calcium decreased [Unknown]
